FAERS Safety Report 8623594 (Version 5)
Quarter: 2012Q4

REPORT INFORMATION
  Report Type: 
  Country: US (occurrence: US)
  Receive Date: 20120620
  Receipt Date: 20120927
  Transmission Date: 20130627
  Serious: Yes (Death)
  Sender: FDA-Public Use
  Company Number: US-PFIZER INC-2012146346

PATIENT
  Age: 90 Year
  Sex: Female

DRUGS (2)
  1. REVATIO [Suspect]
     Indication: PULMONARY HYPERTENSION
     Dosage: 20 mg, 3x/day
     Route: 048
     Dates: start: 201010
  2. REVATIO [Suspect]
     Indication: INTERSTITIAL LUNG DISEASE

REACTIONS (1)
  - Interstitial lung disease [Fatal]
